FAERS Safety Report 4269677-8 (Version None)
Quarter: 2004Q1

REPORT INFORMATION
  Report Type: 
  Country: None (occurrence: None)
  Receive Date: 20040112
  Receipt Date: 20040105
  Transmission Date: 20041129
  Serious: Yes (Death, Hospitalization)
  Sender: FDA-Public Use
  Company Number: US-JNJFOC-20031003731

PATIENT
  Age: 67 Year
  Sex: Female

DRUGS (1)
  1. SPORANOX [Suspect]
     Indication: ASPERGILLOSIS
     Dosage: 100 MG, 4 IN 1 DAY, ORAL
     Route: 048
     Dates: start: 20030101, end: 20030927

REACTIONS (3)
  - ASPERGILLOSIS [None]
  - CHRONIC OBSTRUCTIVE AIRWAYS DISEASE EXACERBATED [None]
  - PNEUMONIA [None]
